FAERS Safety Report 20665795 (Version 1)
Quarter: 2022Q2

REPORT INFORMATION
  Report Type: Report from Study
  Country: US (occurrence: US)
  Receive Date: 20220402
  Receipt Date: 20220402
  Transmission Date: 20220721
  Serious: Yes (Hospitalization, Other)
  Sender: FDA-Public Use
  Company Number: US-TEVA-2022-US-2022102

PATIENT
  Sex: Male
  Weight: 142.9 kg

DRUGS (23)
  1. WARFARIN [Suspect]
     Active Substance: WARFARIN
     Indication: Atrial fibrillation
     Dosage: MWF,
     Route: 048
     Dates: start: 2002
  2. WARFARIN [Suspect]
     Active Substance: WARFARIN
     Dosage: STTHS
     Route: 048
     Dates: start: 2002
  3. HUMULIN R [Concomitant]
     Active Substance: INSULIN HUMAN
     Indication: Type 2 diabetes mellitus
  4. ALLOPURINOL [Concomitant]
     Active Substance: ALLOPURINOL
     Indication: Gout
     Dates: start: 2013
  5. AMIODARONE [Concomitant]
     Active Substance: AMIODARONE
     Indication: Cardiac failure congestive
  6. AMIODARONE [Concomitant]
     Active Substance: AMIODARONE
     Indication: Hypertension
  7. ASPIRIN [Concomitant]
     Active Substance: ASPIRIN
     Indication: Prophylaxis
  8. ASPIRIN [Concomitant]
     Active Substance: ASPIRIN
     Indication: Atrial fibrillation
  9. GABAPENTIN [Concomitant]
     Active Substance: GABAPENTIN
     Indication: Diabetic neuropathy
     Dates: start: 2014
  10. LANTUS [Concomitant]
     Active Substance: INSULIN GLARGINE
     Indication: Type 2 diabetes mellitus
  11. LISINOPRIL [Concomitant]
     Active Substance: LISINOPRIL
     Indication: Hypertension
  12. METOPROLOL [Concomitant]
     Active Substance: METOPROLOL
     Indication: Type 2 diabetes mellitus
  13. VICTOZA [Concomitant]
     Active Substance: LIRAGLUTIDE
     Indication: Type 2 diabetes mellitus
  14. LIPITOR [Concomitant]
     Active Substance: ATORVASTATIN CALCIUM
     Indication: Hyperlipidaemia
  15. IRON [Concomitant]
     Active Substance: IRON
     Indication: Iron deficiency
     Dates: start: 2014
  16. MELATONIN [Concomitant]
     Active Substance: MELATONIN
     Indication: Insomnia
  17. OMEGA [Concomitant]
     Indication: Prophylaxis
  18. POTASSIUM CHLORIDE [Concomitant]
     Active Substance: POTASSIUM CHLORIDE
     Indication: Cardiac failure congestive
  19. TRAZODONE [Concomitant]
     Active Substance: TRAZODONE HYDROCHLORIDE
     Indication: Insomnia
  20. LEVOTHYROXINE [Concomitant]
     Active Substance: LEVOTHYROXINE
     Indication: Hypothyroidism
  21. BENADRYL [Concomitant]
     Active Substance: DIPHENHYDRAMINE HYDROCHLORIDE
     Indication: Insomnia
     Dates: start: 20180103, end: 20180104
  22. LATANOPROST [Concomitant]
     Active Substance: LATANOPROST
  23. ATIVAN [Concomitant]
     Active Substance: LORAZEPAM
     Dates: start: 20180103, end: 20180104

REACTIONS (6)
  - Toxicity to various agents [Recovered/Resolved]
  - Muscular weakness [Recovered/Resolved]
  - Fall [Unknown]
  - Paraesthesia [Unknown]
  - Ataxia [Unknown]
  - Gait disturbance [Unknown]
